FAERS Safety Report 16482318 (Version 1)
Quarter: 2019Q2

REPORT INFORMATION
  Report Type: Report from Study
  Country: US (occurrence: US)
  Receive Date: 20190627
  Receipt Date: 20190627
  Transmission Date: 20190711
  Serious: Yes (Other)
  Sender: FDA-Public Use
  Company Number: US-TEVA-2019-US-1067970

PATIENT
  Sex: Female

DRUGS (2)
  1. RASBURICASE [Suspect]
     Active Substance: RASBURICASE
     Route: 065
  2. LIDOCAINE. [Suspect]
     Active Substance: LIDOCAINE
     Route: 065

REACTIONS (1)
  - Methaemoglobinaemia [Unknown]
